FAERS Safety Report 9205985 (Version 2)
Quarter: 2013Q4

REPORT INFORMATION
  Report Type: Spontaneous
  Country: US (occurrence: US)
  Receive Date: 20130403
  Receipt Date: 20131217
  Transmission Date: 20140711
  Serious: Yes (Other)
  Sender: FDA-Public Use
  Company Number: US-BAYER-2013-039649

PATIENT
  Age: 18 Year
  Sex: Female

DRUGS (3)
  1. YAZ [Suspect]
  2. YASMIN [Suspect]
  3. ALLEGRA-D [Concomitant]
     Dosage: 60 -120 12 HOUR
     Dates: start: 20080522

REACTIONS (5)
  - Gallbladder injury [None]
  - Injury [None]
  - Emotional distress [None]
  - Pain [None]
  - Cholecystitis chronic [None]
